FAERS Safety Report 9401180 (Version 1)
Quarter: 2013Q3

REPORT INFORMATION
  Report Type: Spontaneous
  Country: US (occurrence: US)
  Receive Date: 20130715
  Receipt Date: 20130715
  Transmission Date: 20140515
  Serious: Yes (Other)
  Sender: FDA-Public Use
  Company Number: US-ELI_LILLY_AND_COMPANY-US201307001620

PATIENT
  Age: 75 Year
  Sex: Female

DRUGS (1)
  1. FORTEO [Suspect]
     Indication: OSTEOPOROSIS
     Dosage: UNK, UNKNOWN
     Route: 065
     Dates: start: 2010

REACTIONS (7)
  - Neoplasm malignant [Unknown]
  - Genitourinary tract neoplasm [Unknown]
  - Back pain [Unknown]
  - Fracture [Unknown]
  - Vitamin D decreased [Unknown]
  - Immune system disorder [Unknown]
  - Drug intolerance [Unknown]
